FAERS Safety Report 8065013-X (Version None)
Quarter: 2012Q1

REPORT INFORMATION
  Report Type: 
  Country: None (occurrence: None)
  Receive Date: 20120124
  Receipt Date: 20120112
  Transmission Date: 20120608
  Serious: Yes (Other)
  Sender: FDA-Public Use
  Company Number: AT-AMGEN-AUTSP2011069922

PATIENT
  Age: 39 Year
  Sex: Female
  Weight: 82 kg

DRUGS (3)
  1. FOLSAN [Concomitant]
     Dosage: 5 MG, WEEKLY
  2. ENBREL [Suspect]
     Indication: RHEUMATOID ARTHRITIS
     Dosage: 50 MG, QWK
     Route: 058
     Dates: start: 20110302
  3. METHOTREXATE [Suspect]
     Indication: RHEUMATOID ARTHRITIS
     Dosage: 20 MG, QWK
     Dates: start: 20110124

REACTIONS (3)
  - COLONIC POLYP [None]
  - COLON ADENOMA [None]
  - HAEMATOCHEZIA [None]
